FAERS Safety Report 15647884 (Version 1)
Quarter: 2018Q4

REPORT INFORMATION
  Report Type: Report from Study
  Country: US (occurrence: US)
  Receive Date: 20181122
  Receipt Date: 20181122
  Transmission Date: 20190205
  Serious: Yes (Hospitalization)
  Sender: FDA-Public Use
  Company Number: US-PFIZER INC-2018470298

PATIENT
  Age: 16 Year
  Sex: Male
  Weight: 48.6 kg

DRUGS (8)
  1. METHOTREXATE SODIUM. [Suspect]
     Active Substance: METHOTREXATE SODIUM
     Dosage: 3000 MG/M2, IV OVER 3 HOURS ON DAY 1
     Route: 042
     Dates: start: 20180815, end: 20180815
  2. DEXAMETHASONE. [Suspect]
     Active Substance: DEXAMETHASONE
     Dosage: 5 MG/M2, BID ON DAYS 1-5
     Route: 048
     Dates: start: 20180815, end: 20180819
  3. VP-16 [Suspect]
     Active Substance: ETOPOSIDE
     Dosage: 100 MG/M2, IV OVER 2 HOURS ON DAYS 4 AND 5
     Route: 042
     Dates: start: 20180818, end: 20180819
  4. BACTERIOSTATIC SODIUM CHLORIDE [Suspect]
     Active Substance: SODIUM CHLORIDE
  5. IFOSFAMIDE. [Suspect]
     Active Substance: IFOSFAMIDE
     Dosage: 800 MG/M2, IV OVER 60 MIN ON DAYS 1-5
     Route: 042
     Dates: start: 20180815, end: 20180819
  6. PF-02341066 [Suspect]
     Active Substance: CRIZOTINIB
     Dosage: 165 MG/M2, BID ON DAYS 1-21
     Route: 048
     Dates: start: 20180815
  7. CYTARABINE. [Suspect]
     Active Substance: CYTARABINE
     Dosage: 150 MG/M2, IV OVER 1-30 MINUTES Q12 HOURS ON DAYS 4 AND 5 (TOTAL 4 DOSES)
     Route: 042
     Dates: start: 20180818, end: 20180820
  8. CYCLOPHOSPHAMIDE. [Suspect]
     Active Substance: CYCLOPHOSPHAMIDE
     Dosage: 200 MG/M2, IV OVER 15-30 MINUTES ON DAYS 1 AND 2
     Route: 042
     Dates: start: 20180810, end: 20180811

REACTIONS (2)
  - Adrenal insufficiency [Unknown]
  - Hyponatraemia [Unknown]

NARRATIVE: CASE EVENT DATE: 20180821
